FAERS Safety Report 16103637 (Version 1)
Quarter: 2019Q1

REPORT INFORMATION
  Report Type: Spontaneous
  Country: DK (occurrence: DK)
  Receive Date: 20190322
  Receipt Date: 20190322
  Transmission Date: 20190418
  Serious: Yes (Other)
  Sender: FDA-Public Use
  Company Number: DK-TEVA-2019-DK-1025926

PATIENT
  Age: 65 Year
  Sex: Female

DRUGS (3)
  1. CALCIUM OG D-VITAMIN [Concomitant]
     Indication: OSTEOPOROSIS
     Dosage: STRENGTH: UNKNOWN
     Dates: start: 20090626
  2. VITAMIN D [Concomitant]
     Active Substance: CHOLECALCIFEROL
     Indication: OSTEOPOROSIS
     Dosage: STRENGTH: UNKNOWN
     Dates: start: 20090626
  3. ALENDRONIC ACID [Suspect]
     Active Substance: ALENDRONIC ACID
     Indication: OSTEOPOROSIS
     Dosage: STRENGTH: 70 MG.
     Route: 048
     Dates: start: 20090626, end: 20180213

REACTIONS (8)
  - Jaw operation [Recovered/Resolved]
  - Osteonecrosis of jaw [Not Recovered/Not Resolved]
  - Mastication disorder [Not Recovered/Not Resolved]
  - Tooth loss [Recovered/Resolved with Sequelae]
  - Gingival recession [Recovered/Resolved]
  - Oral cavity fistula [Recovered/Resolved]
  - Impaired healing [Recovered/Resolved]
  - Dental paraesthesia [Recovered/Resolved]

NARRATIVE: CASE EVENT DATE: 2017
